FAERS Safety Report 23565790 (Version 1)
Quarter: 2024Q1

REPORT INFORMATION
  Report Type: Spontaneous
  Country: US (occurrence: US)
  Receive Date: 20240226
  Receipt Date: 20240226
  Transmission Date: 20240410
  Serious: No
  Sender: FDA-Public Use
  Company Number: US-BRISTOL-MYERS SQUIBB COMPANY-2024-029583

PATIENT
  Age: 52 Year
  Sex: Female

DRUGS (1)
  1. DEUCRAVACITINIB [Suspect]
     Active Substance: DEUCRAVACITINIB
     Indication: Oral lichen planus

REACTIONS (2)
  - Dermatitis acneiform [Recovered/Resolved]
  - Off label use [Unknown]
